FAERS Safety Report 17402234 (Version 1)
Quarter: 2020Q1

REPORT INFORMATION
  Report Type: Spontaneous
  Country: US (occurrence: US)
  Receive Date: 20200210
  Receipt Date: 20200210
  Transmission Date: 20200409
  Serious: No
  Sender: FDA-Public Use
  Company Number: None

PATIENT
  Age: 42 Year
  Sex: Male
  Weight: 93.15 kg

DRUGS (1)
  1. EDARBI [Suspect]
     Active Substance: AZILSARTAN KAMEDOXOMIL
     Indication: HYPERTENSION
     Dosage: ?          QUANTITY:1 TABLET(S);?
     Route: 048
     Dates: start: 20181101, end: 20200203

REACTIONS (4)
  - Urine output decreased [None]
  - Blood urea abnormal [None]
  - Glomerular filtration rate abnormal [None]
  - Blood creatine abnormal [None]

NARRATIVE: CASE EVENT DATE: 20200203
